FAERS Safety Report 7731827-6 (Version None)
Quarter: 2011Q3

REPORT INFORMATION
  Report Type: 
  Country: None (occurrence: None)
  Receive Date: 20110906
  Receipt Date: 20110708
  Transmission Date: 20111222
  Serious: No
  Sender: FDA-Public Use
  Company Number: US-AMGEN-USASP2011034747

PATIENT
  Sex: Female

DRUGS (4)
  1. TETRACYCLINE [Concomitant]
     Dosage: 1 MG, UNK
  2. CALCIUM CARBONATE [Concomitant]
     Dosage: 2 UNK, UNK
  3. PROLIA [Suspect]
     Indication: OSTEOPOROSIS POSTMENOPAUSAL
     Dosage: 60 MG, Q6MO
     Dates: start: 20110614
  4. MULTIVITAMIN                       /00097801/ [Concomitant]
     Dosage: 1 UNK, UNK

REACTIONS (5)
  - THROMBOSIS [None]
  - ERYTHEMA [None]
  - NODULE [None]
  - CONTUSION [None]
  - HEADACHE [None]
